FAERS Safety Report 23833749 (Version 1)
Quarter: 2024Q2

REPORT INFORMATION
  Report Type: Report from Study
  Country: CA (occurrence: CA)
  Receive Date: 20240509
  Receipt Date: 20240509
  Transmission Date: 20240716
  Serious: Yes (Hospitalization)
  Sender: FDA-Public Use
  Company Number: CA-BoehringerIngelheim-2023-BI-271260

PATIENT
  Age: 77 Year
  Sex: Female

DRUGS (1)
  1. OFEV [Suspect]
     Active Substance: NINTEDANIB
     Indication: Idiopathic pulmonary fibrosis
     Route: 048
     Dates: start: 20231025

REACTIONS (11)
  - Dyspnoea [Unknown]
  - Abdominal pain [Recovering/Resolving]
  - Diarrhoea [Recovered/Resolved]
  - Malaise [Recovered/Resolved]
  - Arthritis [Unknown]
  - Back pain [Not Recovered/Not Resolved]
  - Abdominal discomfort [Recovered/Resolved with Sequelae]
  - Gastrooesophageal reflux disease [Recovered/Resolved]
  - Abdominal discomfort [Unknown]
  - Gastrooesophageal reflux disease [Unknown]
  - Diarrhoea [Recovering/Resolving]

NARRATIVE: CASE EVENT DATE: 20231205
